FAERS Safety Report 16550754 (Version 1)
Quarter: 2019Q3

REPORT INFORMATION
  Report Type: Spontaneous
  Country: US (occurrence: US)
  Receive Date: 20190528
  Receipt Date: 20190528
  Transmission Date: 20191004
  Serious: Yes (Hospitalization)
  Sender: FDA-Public Use
  Company Number: None

PATIENT
  Age: 34 Year
  Sex: Male

DRUGS (1)
  1. STRIBILD [Suspect]
     Active Substance: COBICISTAT\ELVITEGRAVIR\EMTRICITABINE\TENOFOVIR DISOPROXIL FUMARATE
     Route: 048
     Dates: start: 201710, end: 201901

REACTIONS (5)
  - Drug interaction [None]
  - Insomnia [None]
  - Headache [None]
  - Chest pain [None]
  - Pneumonia aspiration [None]

NARRATIVE: CASE EVENT DATE: 20190528
